FAERS Safety Report 25980522 (Version 1)
Quarter: 2025Q4

REPORT INFORMATION
  Report Type: Spontaneous
  Country: US (occurrence: US)
  Receive Date: 20251030
  Receipt Date: 20251030
  Transmission Date: 20260118
  Serious: No
  Sender: TEVA
  Company Number: US-TEVA-VS-3384244

PATIENT
  Age: 87 Year
  Sex: Male

DRUGS (1)
  1. TERIPARATIDE [Suspect]
     Active Substance: TERIPARATIDE
     Indication: Product used for unknown indication
     Dosage: 560 MCG/2.24 ML, DOSE EVERY MORNING, SECOND PEN WHICH WAS STARTED 2025-10-01
     Route: 065
     Dates: start: 202509

REACTIONS (3)
  - Dizziness [Recovered/Resolved]
  - Device issue [Unknown]
  - Product storage error [Unknown]

NARRATIVE: CASE EVENT DATE: 20250101
